FAERS Safety Report 23855950 (Version 3)
Quarter: 2025Q2

REPORT INFORMATION
  Report Type: Report from Study
  Country: US (occurrence: US)
  Receive Date: 20240515
  Receipt Date: 20250411
  Transmission Date: 20250717
  Serious: Yes (Hospitalization)
  Sender: ROCHE
  Company Number: US-ROCHE-3560677

PATIENT
  Age: 57 Year
  Sex: Female

DRUGS (4)
  1. ENSPRYNG [Suspect]
     Active Substance: SATRALIZUMAB-MWGE
     Indication: Neuromyelitis optica spectrum disorder
     Dosage: INJECT WEEK 0,2 AND 4?MAINTENANCE DOSE: 120 MG EVERY 4 WEEKS
     Route: 058
     Dates: start: 202304
  2. ENSPRYNG [Suspect]
     Active Substance: SATRALIZUMAB-MWGE
  3. ENSPRYNG [Suspect]
     Active Substance: SATRALIZUMAB-MWGE
  4. RITUXAN [Suspect]
     Active Substance: RITUXIMAB
     Indication: Product used for unknown indication
     Route: 065

REACTIONS (3)
  - Sepsis [Recovered/Resolved]
  - Nephrolithiasis [Unknown]
  - Drug hypersensitivity [Unknown]
